FAERS Safety Report 15729447 (Version 4)
Quarter: 2019Q1

REPORT INFORMATION
  Report Type: Spontaneous
  Country: JP (occurrence: JP)
  Receive Date: 20181217
  Receipt Date: 20190117
  Transmission Date: 20190417
  Serious: Yes (Death)
  Sender: FDA-Public Use
  Company Number: JP-PFIZER INC-2018516386

PATIENT
  Age: 44 Year
  Sex: Female
  Weight: 39 kg

DRUGS (26)
  1. FOSTOIN [Suspect]
     Active Substance: FOSPHENYTOIN SODIUM
     Indication: EPILEPSY
     Dosage: 750 MG, 3X/DAY (AT A.M.6:00, P.M.2:00, P.M.10:00)
     Route: 041
     Dates: start: 20181030, end: 20181031
  2. PROPOFOL. [Concomitant]
     Active Substance: PROPOFOL
     Dosage: UNK
     Route: 065
     Dates: start: 20181029, end: 20181031
  3. MEROPENEM. [Concomitant]
     Active Substance: MEROPENEM
     Dosage: 1 G, 3X/DAY
     Route: 041
     Dates: start: 20181029, end: 20181101
  4. GLUCOSE [Concomitant]
     Active Substance: DEXTROSE
     Dosage: UNK
     Route: 065
     Dates: start: 20181029, end: 20181029
  5. LAXOBERON [Concomitant]
     Active Substance: SODIUM PICOSULFATE
     Dosage: UNK
     Route: 065
     Dates: start: 20181101, end: 20181101
  6. RANITIDINE. [Concomitant]
     Active Substance: RANITIDINE
     Dosage: 100 MG, 2X/DAY
     Route: 065
     Dates: start: 20181029, end: 20181101
  7. ZITHROMAC [Concomitant]
     Active Substance: AZITHROMYCIN DIHYDRATE
     Dosage: 500 MG, 1X/DAY
     Route: 041
     Dates: start: 20181101, end: 20181101
  8. HIRUDOID [Concomitant]
     Active Substance: GLYCOSAMINOGLYCANS
     Dosage: UNK
     Route: 065
     Dates: start: 20181030, end: 20181030
  9. HEPARIN NA LOCK [Concomitant]
     Active Substance: HEPARIN SODIUM
     Dosage: UNK
     Route: 065
     Dates: start: 20181029, end: 20181029
  10. SOLYUGEN F [Concomitant]
     Dosage: UNK
     Route: 065
     Dates: start: 20181029, end: 20181101
  11. HEPARIN SODIUM. [Concomitant]
     Active Substance: HEPARIN SODIUM
     Dosage: UNK
     Route: 065
     Dates: start: 20181029, end: 20181029
  12. NORADRENALINE [NOREPINEPHRINE] [Concomitant]
     Active Substance: NOREPINEPHRINE
     Dosage: UNK
     Route: 065
     Dates: start: 20181101, end: 20181101
  13. GLUCOSE [Concomitant]
     Active Substance: DEXTROSE
     Dosage: UNK
     Route: 065
     Dates: start: 20181101, end: 20181101
  14. ATROPINE. [Concomitant]
     Active Substance: ATROPINE
     Dosage: UNK
     Route: 065
     Dates: start: 20181101, end: 20181101
  15. FOSTOIN [Suspect]
     Active Substance: FOSPHENYTOIN SODIUM
     Indication: EPILEPSY
     Dosage: 750 MG, 1X/DAY (750MG/60MIN)
     Route: 041
     Dates: start: 20181029, end: 20181029
  16. FOSTOIN [Suspect]
     Active Substance: FOSPHENYTOIN SODIUM
     Dosage: 750 MG, 2X/DAY (AT A.M.6:00, P.M.2:00)
     Route: 041
     Dates: start: 20181101
  17. REPLAS 3 [Concomitant]
     Dosage: UNK
     Route: 065
     Dates: start: 20181031, end: 20181101
  18. ESLAX [Concomitant]
     Active Substance: ROCURONIUM BROMIDE
     Dosage: UNK
     Route: 065
     Dates: start: 20181029, end: 20181029
  19. HEPARIN SODIUM. [Concomitant]
     Active Substance: HEPARIN SODIUM
     Dosage: UNK
     Route: 065
     Dates: start: 20181031, end: 20181101
  20. ACTIT [MAGNESIUM CHLORIDE;MALTOSE;POTASSIUM CHLORIDE;POTASSIUM PHOSPHA [Concomitant]
     Dosage: UNK
     Route: 065
     Dates: start: 20181029, end: 20181031
  21. CALCICOL [Concomitant]
     Active Substance: CALCIUM GLUCONATE
     Dosage: UNK
     Route: 065
     Dates: start: 20181101, end: 20181101
  22. HUMULIN R [Concomitant]
     Active Substance: INSULIN HUMAN
     Dosage: UNK
     Route: 065
     Dates: start: 20181101, end: 20181101
  23. FENTANYL. [Concomitant]
     Active Substance: FENTANYL
     Dosage: UNK
     Route: 065
     Dates: start: 20181029, end: 20181031
  24. ADRENALINE [EPINEPHRINE] [Concomitant]
     Active Substance: EPINEPHRINE
     Dosage: UNK
     Route: 065
     Dates: start: 20181101, end: 20181101
  25. HEPARIN NA LOCK [Concomitant]
     Active Substance: HEPARIN SODIUM
     Dosage: UNK
     Route: 065
     Dates: start: 20181101, end: 20181101
  26. L CARTIN FF [Concomitant]
     Active Substance: LEVOCARNITINE
     Dosage: 500 MG, 3X/DAY
     Route: 065
     Dates: start: 20181030, end: 20181101

REACTIONS (8)
  - Respiratory failure [Fatal]
  - Acute respiratory distress syndrome [Fatal]
  - Sinoatrial block [Fatal]
  - Bradycardia [Fatal]
  - Overdose [Fatal]
  - Condition aggravated [Fatal]
  - Cardio-respiratory arrest [Fatal]
  - Respiratory depression [Fatal]

NARRATIVE: CASE EVENT DATE: 20181101
